FAERS Safety Report 14490733 (Version 2)
Quarter: 2018Q1

REPORT INFORMATION
  Report Type: Spontaneous
  Country: CN (occurrence: CN)
  Receive Date: 20180206
  Receipt Date: 20180215
  Transmission Date: 20180509
  Serious: Yes (Other)
  Sender: FDA-Public Use
  Company Number: CN-MERCK KGAA-2041448

PATIENT
  Age: 25 Year
  Sex: Female

DRUGS (4)
  1. NOVOTHYROX [Suspect]
     Active Substance: LEVOTHYROXINE SODIUM
     Indication: HYPOTHYROIDISM
     Route: 048
     Dates: start: 201605
  2. EUTHYROX 50 MCG [Suspect]
     Active Substance: LEVOTHYROXINE SODIUM
     Route: 048
     Dates: start: 20180203
  3. EUTHYROX 50 MCG [Suspect]
     Active Substance: LEVOTHYROXINE SODIUM
     Dates: end: 2017
  4. EUTHYROX 50 MCG [Suspect]
     Active Substance: LEVOTHYROXINE SODIUM
     Route: 048
     Dates: start: 20180118

REACTIONS (5)
  - Blood thyroid stimulating hormone increased [None]
  - Complication of pregnancy [Recovered/Resolved]
  - Maternal exposure during breast feeding [None]
  - Normal newborn [Recovered/Resolved]
  - Maternal exposure during pregnancy [Recovered/Resolved]

NARRATIVE: CASE EVENT DATE: 2017
